FAERS Safety Report 10088004 (Version 2)
Quarter: 2014Q2

REPORT INFORMATION
  Report Type: Report from Study
  Country: BR (occurrence: BR)
  Receive Date: 20140420
  Receipt Date: 20140612
  Transmission Date: 20141212
  Serious: Yes (Hospitalization, Other)
  Sender: FDA-Public Use
  Company Number: PHHY2014BR045796

PATIENT
  Age: 63 Year
  Sex: Female
  Weight: 65 kg

DRUGS (3)
  1. SANDOSTATIN LAR [Suspect]
     Indication: METASTASES TO LIVER
     Dosage: UNK UKN, EVERY 28 DAYS
  2. SANDOSTATIN LAR [Suspect]
     Indication: HEPATIC CANCER
     Dosage: 1 APPLICATION, MONTHLY
     Route: 030
  3. SANDOSTATIN LAR [Suspect]
     Indication: OFF LABEL USE

REACTIONS (8)
  - Cholelithiasis [Not Recovered/Not Resolved]
  - Pain [Not Recovered/Not Resolved]
  - Vessel puncture site haematoma [Not Recovered/Not Resolved]
  - Nausea [Recovered/Resolved]
  - Vomiting [Not Recovered/Not Resolved]
  - Body height decreased [Not Recovered/Not Resolved]
  - Confusional state [Not Recovered/Not Resolved]
  - Memory impairment [Not Recovered/Not Resolved]
